FAERS Safety Report 18302650 (Version 10)
Quarter: 2024Q3

REPORT INFORMATION
  Report Type: Report from Study
  Country: CA (occurrence: CA)
  Receive Date: 20200923
  Receipt Date: 20240801
  Transmission Date: 20241016
  Serious: Yes (Other)
  Sender: ROCHE
  Company Number: CA-ROCHE-2665968

PATIENT
  Age: 30 Year
  Sex: Female
  Weight: 54.43 kg

DRUGS (2)
  1. OCREVUS [Suspect]
     Active Substance: OCRELIZUMAB
     Indication: Relapsing-remitting multiple sclerosis
     Dosage: 300 MG AT DAY 0 AND 14, THEN 600 MG EVERY 6 MONTH
     Route: 042
     Dates: start: 20200206, end: 20210427
  2. OCREVUS [Suspect]
     Active Substance: OCRELIZUMAB
     Indication: Multiple sclerosis
     Dosage: OCREVUS 300MG IV OVER 2.45 HOURS
     Route: 042
     Dates: start: 20240723

REACTIONS (10)
  - Infusion related reaction [Recovered/Resolved]
  - Injection site reaction [Not Recovered/Not Resolved]
  - Syncope [Unknown]
  - Stress [Unknown]
  - Flushing [Unknown]
  - Fatigue [Recovered/Resolved]
  - Insomnia [Unknown]
  - Maternal exposure before pregnancy [Unknown]
  - Nausea [Not Recovered/Not Resolved]
  - Infusion related reaction [Recovered/Resolved]

NARRATIVE: CASE EVENT DATE: 20200820
